FAERS Safety Report 18499391 (Version 1)
Quarter: 2020Q4

REPORT INFORMATION
  Report Type: Report from Study
  Country: ID (occurrence: FR)
  Receive Date: 20201113
  Receipt Date: 20201113
  Transmission Date: 20210114
  Serious: Yes (Hospitalization, Other)
  Sender: FDA-Public Use
  Company Number: FR-TEVA-2020-FR-1848829

PATIENT
  Age: 70 Year
  Sex: Male

DRUGS (12)
  1. ROGARATINIB [Suspect]
     Active Substance: ROGARATINIB
     Indication: METASTATIC CARCINOMA OF THE BLADDER
     Dosage: 1600 MILLIGRAM DAILY;
     Route: 065
     Dates: start: 20171016, end: 20171127
  2. ROGARATINIB [Suspect]
     Active Substance: ROGARATINIB
     Dosage: 1200 MILLIGRAM DAILY;
     Route: 065
     Dates: start: 201712, end: 201802
  3. CISPLATIN. [Suspect]
     Active Substance: CISPLATIN
     Indication: BLADDER TRANSITIONAL CELL CARCINOMA RECURRENT
     Route: 065
     Dates: start: 20170503, end: 20170904
  4. IRBESARTAN. [Concomitant]
     Active Substance: IRBESARTAN
     Indication: HYPERTENSION
     Route: 065
  5. ALLOPURINOL. [Concomitant]
     Active Substance: ALLOPURINOL
     Indication: PRODUCT USED FOR UNKNOWN INDICATION
     Route: 065
  6. AMIODARONE [Concomitant]
     Active Substance: AMIODARONE
     Indication: PRODUCT USED FOR UNKNOWN INDICATION
     Route: 065
  7. EZETIMIB [Concomitant]
     Active Substance: EZETIMIBE
     Indication: HYPERCHOLESTEROLAEMIA
     Route: 065
  8. NEBIVOLOL. [Concomitant]
     Active Substance: NEBIVOLOL
     Indication: HYPERTENSION
     Route: 065
  9. DILTIAZEM. [Concomitant]
     Active Substance: DILTIAZEM
     Indication: PRODUCT USED FOR UNKNOWN INDICATION
     Route: 065
  10. GEMCITABINE. [Concomitant]
     Active Substance: GEMCITABINE
     Indication: BLADDER TRANSITIONAL CELL CARCINOMA RECURRENT
     Route: 065
     Dates: start: 20170503, end: 20170904
  11. SIMVASTATIN. [Concomitant]
     Active Substance: SIMVASTATIN
     Indication: HYPERCHOLESTEROLAEMIA
     Route: 065
  12. TINZAPARIN [Concomitant]
     Active Substance: TINZAPARIN
     Indication: MYOCARDIAL ISCHAEMIA
     Route: 065

REACTIONS (2)
  - Drug ineffective [Unknown]
  - Renal tubular necrosis [Recovering/Resolving]
